FAERS Safety Report 18093658 (Version 1)
Quarter: 2020Q3

REPORT INFORMATION
  Report Type: Spontaneous
  Country: US (occurrence: US)
  Receive Date: 20200730
  Receipt Date: 20200730
  Transmission Date: 20201103
  Serious: Yes (Death, Other)
  Sender: FDA-Public Use
  Company Number: US-SA-2020SA196031

PATIENT

DRUGS (1)
  1. ZANTAC [Suspect]
     Active Substance: RANITIDINE HYDROCHLORIDE
     Dosage: UNK
     Dates: start: 201201, end: 201701

REACTIONS (4)
  - Hepatic cancer [Fatal]
  - Oesophageal carcinoma [Fatal]
  - Nasal cavity cancer [Fatal]
  - Throat cancer [Fatal]

NARRATIVE: CASE EVENT DATE: 20170113
